FAERS Safety Report 5499255-4 (Version None)
Quarter: 2007Q4

REPORT INFORMATION
  Report Type: 
  Country: None (occurrence: None)
  Receive Date: 20071024
  Receipt Date: 20071010
  Transmission Date: 20080405
  Serious: Yes (Other)
  Sender: FDA-Public Use
  Company Number: B0491955A

PATIENT
  Age: 76 Year
  Sex: Male

DRUGS (2)
  1. DIGOXIN [Suspect]
     Dosage: .25 MG/ PER DAY /
  2. ASPIRIN [Concomitant]

REACTIONS (16)
  - CONFUSIONAL STATE [None]
  - ELECTROCARDIOGRAM QRS COMPLEX SHORTENED [None]
  - ELECTROCARDIOGRAM ST SEGMENT DEPRESSION [None]
  - ELECTROCARDIOGRAM T WAVE INVERSION [None]
  - FEELING ABNORMAL [None]
  - HALO VISION [None]
  - MENTAL DISORDER [None]
  - NAUSEA [None]
  - NODAL RHYTHM [None]
  - ORAL INTAKE REDUCED [None]
  - PALLOR [None]
  - PERIPHERAL COLDNESS [None]
  - RALES [None]
  - SINOATRIAL BLOCK [None]
  - THERAPEUTIC AGENT TOXICITY [None]
  - VOMITING [None]
